FAERS Safety Report 9358836 (Version 2)
Quarter: 2013Q2

REPORT INFORMATION
  Report Type: Spontaneous
  Country: CA (occurrence: CA)
  Receive Date: 20130620
  Receipt Date: 20130628
  Transmission Date: 20140414
  Serious: Yes (Other)
  Sender: FDA-Public Use
  Company Number: CA-AMGEN-CANSP2013043249

PATIENT
  Age: 44 Year
  Sex: Female

DRUGS (4)
  1. ENBREL [Suspect]
     Indication: RHEUMATOID ARTHRITIS
     Dosage: 50 MG, QWK
     Route: 058
     Dates: start: 20130104, end: 2013
  2. NAPROXEN [Concomitant]
     Indication: ANKYLOSING SPONDYLITIS
     Dosage: 500 MG, BID
     Route: 048
     Dates: start: 20121205
  3. PLAQUENIL                          /00072602/ [Concomitant]
     Indication: RHEUMATOID ARTHRITIS
     Dosage: 400 MG, ONCE A DAY
     Route: 048
     Dates: start: 20100408
  4. METHOTREXATE [Concomitant]
     Indication: RHEUMATOID ARTHRITIS
     Dosage: 25 MG, QWK
     Route: 048
     Dates: start: 20120816

REACTIONS (6)
  - Panic attack [Unknown]
  - Anxiety [Recovered/Resolved]
  - Injection site rash [Unknown]
  - Injection site erythema [Unknown]
  - Injection site pruritus [Unknown]
  - Injection site reaction [Recovered/Resolved]
